FAERS Safety Report 17473128 (Version 1)
Quarter: 2020Q1

REPORT INFORMATION
  Report Type: Spontaneous
  Country: US (occurrence: US)
  Receive Date: 20200228
  Receipt Date: 20200228
  Transmission Date: 20200409
  Serious: Yes (Death, Hospitalization)
  Sender: FDA-Public Use
  Company Number: US-MYLANLABS-2020M1020974

PATIENT
  Age: 96 Year
  Sex: Female

DRUGS (1)
  1. METHOTREXATE. [Suspect]
     Active Substance: METHOTREXATE
     Indication: PRODUCT USED FOR UNKNOWN INDICATION
     Dosage: 1 DOSAGE FORM, QD
     Route: 048

REACTIONS (10)
  - Asthenia [Not Recovered/Not Resolved]
  - Inappropriate schedule of product administration [Fatal]
  - Bone marrow failure [Fatal]
  - Confusional state [Not Recovered/Not Resolved]
  - Toxicity to various agents [Fatal]
  - Nausea [Not Recovered/Not Resolved]
  - Stomatitis [Not Recovered/Not Resolved]
  - Wound [Not Recovered/Not Resolved]
  - Renal impairment [Recovering/Resolving]
  - Urinary tract infection [Fatal]
